FAERS Safety Report 7362238-3 (Version None)
Quarter: 2011Q1

REPORT INFORMATION
  Report Type: 
  Country: None (occurrence: None)
  Receive Date: 20110318
  Receipt Date: 20110307
  Transmission Date: 20110831
  Serious: Yes (Other)
  Sender: FDA-Public Use
  Company Number: PHHY2011FR19436

PATIENT
  Sex: Male

DRUGS (1)
  1. AFINITOR [Suspect]
     Indication: ENDOCRINE NEOPLASM
     Dosage: 10 MG, QD
     Route: 048

REACTIONS (2)
  - TRANSAMINASES INCREASED [None]
  - CYTOLYTIC HEPATITIS [None]
